FAERS Safety Report 25419126 (Version 1)
Quarter: 2025Q2

REPORT INFORMATION
  Report Type: Spontaneous
  Country: CN (occurrence: CN)
  Receive Date: 20250610
  Receipt Date: 20250610
  Transmission Date: 20250717
  Serious: No
  Sender: BLUEPRINT MEDICINES
  Company Number: CN-CSTONE PHARMACEUTICALS (SUZHOU) CO., LTD.-2025CN00325

PATIENT
  Age: 11 Year
  Sex: Female
  Weight: 35 kg

DRUGS (1)
  1. AYVAKIT [Suspect]
     Active Substance: AVAPRITINIB
     Indication: Acute myeloid leukaemia
     Dosage: 50 MILLIGRAM, QD
     Dates: start: 20250429, end: 20250509

REACTIONS (4)
  - Off label use [Unknown]
  - Off label use [Unknown]
  - Off label use [Unknown]
  - Rash [Recovering/Resolving]

NARRATIVE: CASE EVENT DATE: 20250429
